FAERS Safety Report 6858102-6 (Version None)
Quarter: 2010Q3

REPORT INFORMATION
  Report Type: 
  Country: None (occurrence: None)
  Receive Date: 20100719
  Receipt Date: 20080331
  Transmission Date: 20110219
  Serious: No
  Sender: FDA-Public Use
  Company Number: US-PFIZER INC-2008010387

PATIENT
  Sex: Female
  Weight: 72.7 kg

DRUGS (6)
  1. CHANTIX [Suspect]
     Indication: SMOKING CESSATION THERAPY
     Route: 048
     Dates: start: 20080126
  2. DEPAKOTE [Concomitant]
     Indication: CONVULSION
  3. DEPAKOTE [Concomitant]
     Indication: BIPOLAR DISORDER
  4. LAMICTAL [Concomitant]
     Indication: CONVULSION
  5. LAMICTAL [Concomitant]
     Indication: BIPOLAR DISORDER
  6. RESTORIL [Concomitant]
     Indication: INSOMNIA

REACTIONS (3)
  - ABDOMINAL DISCOMFORT [None]
  - HUNGER [None]
  - NAUSEA [None]
